FAERS Safety Report 11801793 (Version 1)
Quarter: 2015Q4

REPORT INFORMATION
  Report Type: Report from Study
  Country: US (occurrence: US)
  Receive Date: 20151204
  Receipt Date: 20151204
  Transmission Date: 20160305
  Serious: Yes (Hospitalization, Other)
  Sender: FDA-Public Use
  Company Number: US-BAYER-2015-459144

PATIENT
  Age: 64 Year
  Sex: Male

DRUGS (15)
  1. ATORVASTATIN [Concomitant]
     Active Substance: ATORVASTATIN
  2. GLIPIZIDE. [Concomitant]
     Active Substance: GLIPIZIDE
  3. PHENERGAN W/ CODEINE [Concomitant]
     Active Substance: CODEINE PHOSPHATE\PROMETHAZINE HYDROCHLORIDE
     Indication: COUGH
  4. AMOXICILLIN W/CLAVULANIC ACID [Concomitant]
     Active Substance: AMOXICILLIN\CLAVULANIC ACID
  5. FLUCONAZOLE. [Concomitant]
     Active Substance: FLUCONAZOLE
  6. LEVOFLOXACIN. [Concomitant]
     Active Substance: LEVOFLOXACIN
  7. METFORMIN [Concomitant]
     Active Substance: METFORMIN HYDROCHLORIDE
  8. STIVARGA [Suspect]
     Active Substance: REGORAFENIB
     Indication: COLON CANCER
     Dosage: (4) 40 MG TABS (160 MG) DAILY X 21 DAYS THEN 7 DAYS OFF
     Route: 048
     Dates: start: 20151015, end: 2015
  9. PHENERGAN W/ CODEINE [Concomitant]
     Active Substance: CODEINE PHOSPHATE\PROMETHAZINE HYDROCHLORIDE
     Indication: DYSPNOEA
  10. PROCHLORPERAZINE. [Concomitant]
     Active Substance: PROCHLORPERAZINE
  11. PROMETHAZINE - CODEINE [CODEINE PHOSPHATE,PROMETHAZINE HYDROCHLORI [Concomitant]
  12. TRAMADOL HCL CF [Concomitant]
  13. AMIODARONE [Concomitant]
     Active Substance: AMIODARONE
  14. IBUPROFEN. [Concomitant]
     Active Substance: IBUPROFEN
  15. METOPROLOL TARTRATE. [Concomitant]
     Active Substance: METOPROLOL TARTRATE

REACTIONS (6)
  - Myocardial infarction [Recovering/Resolving]
  - Rash generalised [Unknown]
  - Dizziness [Unknown]
  - Asthenia [None]
  - Myocardial infarction [Recovering/Resolving]
  - Oedema peripheral [None]

NARRATIVE: CASE EVENT DATE: 20151020
